FAERS Safety Report 10509265 (Version 1)
Quarter: 2014Q4

REPORT INFORMATION
  Report Type: Spontaneous
  Country: HR (occurrence: HR)
  Receive Date: 20141009
  Receipt Date: 20141009
  Transmission Date: 20150528
  Serious: Yes (Other)
  Sender: FDA-Public Use
  Company Number: PHHY2014HR130451

PATIENT
  Age: 27 Year
  Sex: Female

DRUGS (1)
  1. DESOGESTREL AND ETHINYL ESTRADIOL [Suspect]
     Active Substance: DESOGESTREL\ETHINYL ESTRADIOL
     Indication: CONTRACEPTION
     Dosage: 1 DF, UNK
     Dates: start: 201202

REACTIONS (2)
  - Menstrual disorder [Unknown]
  - Menorrhagia [Unknown]

NARRATIVE: CASE EVENT DATE: 20140801
